FAERS Safety Report 7130473-5 (Version None)
Quarter: 2010Q4

REPORT INFORMATION
  Report Type: 
  Country: None (occurrence: None)
  Receive Date: 20101201
  Receipt Date: 20101118
  Transmission Date: 20110411
  Serious: Yes (Hospitalization, Other)
  Sender: FDA-Public Use
  Company Number: PHHY2010BR28049

PATIENT
  Sex: Female

DRUGS (1)
  1. DIOVAN [Suspect]
     Dosage: 1 TABLET PER DAY
     Route: 048
     Dates: start: 20080101, end: 20100329

REACTIONS (3)
  - ANGINA PECTORIS [None]
  - CHEST PAIN [None]
  - VASCULAR GRAFT [None]
